FAERS Safety Report 8349048-5 (Version None)
Quarter: 2012Q2

REPORT INFORMATION
  Report Type: 
  Country: None (occurrence: None)
  Receive Date: 20120508
  Receipt Date: 20120426
  Transmission Date: 20120825
  Serious: Yes (Hospitalization)
  Sender: FDA-Public Use
  Company Number: 2012MA004702

PATIENT
  Age: 65 Year
  Sex: Female

DRUGS (9)
  1. DICLOFENAC SODIUM [Suspect]
     Dosage: 50 MG;TID;PO
     Route: 048
     Dates: end: 20120308
  2. METOLAZONE [Suspect]
     Dosage: PO
     Route: 048
     Dates: end: 20120308
  3. PRILOSEC [Concomitant]
  4. PREGABALIN [Concomitant]
  5. ALBUTEROL [Concomitant]
  6. LOSARTAN POTASSIUM [Suspect]
     Dosage: PO
     Route: 048
     Dates: end: 20120308
  7. KADIAN [Suspect]
     Indication: PAIN
     Dosage: 5 MG;BID;PO
     Route: 048
     Dates: start: 20120304, end: 20120308
  8. CITALOPRAM HYDROBROMIDE [Concomitant]
  9. ACETAMINOPHEN [Concomitant]

REACTIONS (5)
  - CONFUSIONAL STATE [None]
  - SOMNOLENCE [None]
  - DEHYDRATION [None]
  - RENAL FAILURE ACUTE [None]
  - TOXICITY TO VARIOUS AGENTS [None]
